FAERS Safety Report 23873485 (Version 1)
Quarter: 2024Q2

REPORT INFORMATION
  Report Type: Spontaneous
  Country: US (occurrence: None)
  Receive Date: 20240516
  Receipt Date: 20240516
  Transmission Date: 20240716
  Serious: Yes (Other)
  Sender: FDA-Public Use
  Company Number: None

PATIENT
  Age: 63 Year
  Sex: Female
  Weight: 53.1 kg

DRUGS (2)
  1. HERBALS\ZINC CHLORIDE [Suspect]
     Active Substance: HERBALS\ZINC CHLORIDE
     Indication: Furuncle
  2. HERBALS\ZINC CHLORIDE [Suspect]
     Active Substance: HERBALS\ZINC CHLORIDE
     Indication: Abscess

REACTIONS (3)
  - Furuncle [None]
  - Abscess [None]
  - Disease recurrence [None]

NARRATIVE: CASE EVENT DATE: 20240228
